FAERS Safety Report 9371149 (Version 1)
Quarter: 2013Q2

REPORT INFORMATION
  Report Type: Spontaneous
  Country: IT (occurrence: IT)
  Receive Date: 20130627
  Receipt Date: 20130627
  Transmission Date: 20140414
  Serious: Yes (Hospitalization)
  Sender: FDA-Public Use
  Company Number: IT-ACCORD-018181

PATIENT
  Age: 64 Year
  Sex: Male
  Weight: 59 kg

DRUGS (6)
  1. IRINOTECAN HYDROCHLORIDE [Suspect]
     Indication: COLON NEOPLASM
     Route: 042
     Dates: start: 20121220, end: 20130426
  2. ONDANSETRON [Suspect]
     Indication: PREMEDICATION
     Route: 042
     Dates: start: 20121220, end: 20130426
  3. AVASTIN [Suspect]
     Indication: COLON NEOPLASM
     Route: 042
     Dates: start: 20130222, end: 20130426
  4. DEXAMETHASONE PHOSPHATE [Concomitant]
     Indication: PREMEDICATION
     Dosage: SOLUTION FOR INTRAVENOUS INFUSION
     Route: 042
     Dates: start: 20121220, end: 20130426
  5. ZANTAC [Concomitant]
     Indication: PREMEDICATION
     Dosage: 50 MG/5 ML,??INJECTABLE SOLUTION FOR INTRAVENOUS USE
     Route: 042
     Dates: start: 20121220, end: 20130426
  6. XELODA [Concomitant]
     Indication: COLON NEOPLASM
     Dosage: 500 MG
     Dates: start: 20121220, end: 20130426

REACTIONS (2)
  - Hypertension [Recovered/Resolved]
  - Subileus [Recovered/Resolved]
